FAERS Safety Report 12876961 (Version 1)
Quarter: 2016Q4

REPORT INFORMATION
  Report Type: Spontaneous
  Country: JP (occurrence: JP)
  Receive Date: 20161024
  Receipt Date: 20161024
  Transmission Date: 20170207
  Serious: Yes (Other)
  Sender: FDA-Public Use
  Company Number: JP-GLAXOSMITHKLINE-JP2016JPN152340

PATIENT
  Age: 43 Year
  Sex: Male

DRUGS (3)
  1. ZOVIRAX [Suspect]
     Active Substance: ACYCLOVIR
     Indication: OPHTHALMIC HERPES SIMPLEX
     Dosage: UNK
     Route: 031
     Dates: start: 20150217
  2. VALTREX [Suspect]
     Active Substance: VALACYCLOVIR HYDROCHLORIDE
     Indication: OPHTHALMIC HERPES SIMPLEX
     Dosage: UNK
     Route: 048
     Dates: start: 20160217
  3. TACROLIMUS HYDRATE [Concomitant]
     Active Substance: TACROLIMUS

REACTIONS (6)
  - Ophthalmic herpes simplex [Recovered/Resolved]
  - Drug resistance [Recovered/Resolved]
  - Corneal opacity [Recovered/Resolved]
  - Keratitis [Recovered/Resolved]
  - Corneal epithelium defect [Recovered/Resolved]
  - Corneal disorder [Recovered/Resolved]
